FAERS Safety Report 21264513 (Version 2)
Quarter: 2025Q3

REPORT INFORMATION
  Report Type: Spontaneous
  Country: AU (occurrence: EU)
  Receive Date: 20220829
  Receipt Date: 20250805
  Transmission Date: 20251021
  Serious: Yes (Death, Other)
  Sender: AUROBINDO
  Company Number: EU-EMA-DD-20220812-116003-062758

PATIENT
  Age: 21 Year
  Sex: Female

DRUGS (3)
  1. MOXIFLOXACIN [Suspect]
     Active Substance: MOXIFLOXACIN
     Indication: Product used for unknown indication
     Route: 065
  2. PAZOPANIB [Suspect]
     Active Substance: PAZOPANIB
     Indication: Product used for unknown indication
     Route: 065
  3. MOXIFLOXACIN [Concomitant]
     Active Substance: MOXIFLOXACIN
     Indication: Product used for unknown indication
     Route: 065

REACTIONS (11)
  - Pericardial effusion [Fatal]
  - Hepatorenal syndrome [Unknown]
  - Pneumonia [Unknown]
  - Pleural effusion [Unknown]
  - Hepatic failure [Unknown]
  - Multiple organ dysfunction syndrome [Unknown]
  - Chronic kidney disease [Unknown]
  - Hepatic function abnormal [Unknown]
  - Cardiac tamponade [Unknown]
  - Cardiomegaly [Unknown]
  - Fatigue [Unknown]
